FAERS Safety Report 4587899-3 (Version None)
Quarter: 2005Q1

REPORT INFORMATION
  Report Type: 
  Country: None (occurrence: None)
  Receive Date: 20050219
  Receipt Date: 20050207
  Transmission Date: 20050727
  Serious: Yes (Life-Threatening, Hospitalization)
  Sender: FDA-Public Use
  Company Number: PHEH2005US01736

PATIENT
  Age: 3 Year
  Sex: Female
  Weight: 14 kg

DRUGS (2)
  1. TRILEPTAL [Suspect]
     Indication: SIMPLE PARTIAL SEIZURES
     Dosage: 420 MG, BID
     Route: 048
     Dates: start: 20050111, end: 20050201
  2. TEGRETOL [Suspect]
     Indication: SIMPLE PARTIAL SEIZURES
     Dosage: 60 MG, BID
     Route: 048
     Dates: start: 20050107, end: 20050111

REACTIONS (13)
  - BRONCHIAL ULCERATION [None]
  - CONJUNCTIVITIS [None]
  - DEHYDRATION [None]
  - DYSPHAGIA [None]
  - INFLUENZA LIKE ILLNESS [None]
  - LIFE SUPPORT [None]
  - MUCOSAL INFLAMMATION [None]
  - ORAL MUCOSAL EXFOLIATION [None]
  - PYREXIA [None]
  - RASH ERYTHEMATOUS [None]
  - STEVENS-JOHNSON SYNDROME [None]
  - URETHRAL DISORDER [None]
  - VAGINAL EROSION [None]
